FAERS Safety Report 5916926-3 (Version None)
Quarter: 2008Q4

REPORT INFORMATION
  Report Type: 
  Country: None (occurrence: None)
  Receive Date: 20081013
  Receipt Date: 20080930
  Transmission Date: 20090506
  Serious: Yes (Hospitalization)
  Sender: FDA-Public Use
  Company Number: FR-B.I. PHARMACEUTICALS,INC./RIDGEFIELD-2008-FF-00672FF

PATIENT
  Sex: Male
  Weight: 74 kg

DRUGS (7)
  1. APTIVUS [Suspect]
     Indication: HIV INFECTION
     Dosage: TPV/RTV 500/200MG
     Route: 048
     Dates: start: 20030625, end: 20080130
  2. DIPROSALIC [Concomitant]
     Indication: HYPERKERATOSIS
     Dates: start: 20070118
  3. IMODIUM [Concomitant]
     Indication: DIARRHOEA
     Dates: start: 20070122
  4. ZELITREX [Concomitant]
     Indication: HERPES VIRUS INFECTION
     Dates: start: 20070122
  5. CRESTOR [Concomitant]
     Indication: HYPERTRIGLYCERIDAEMIA
     Dates: start: 20070927
  6. LAMISIL [Concomitant]
     Indication: HYPERKERATOSIS
     Dates: start: 20080131
  7. DUSPATALIN [Concomitant]
     Indication: DYSPEPSIA
     Dates: start: 20080131

REACTIONS (1)
  - CHOLECYSTITIS [None]
